FAERS Safety Report 13669892 (Version 1)
Quarter: 2017Q2

REPORT INFORMATION
  Report Type: Spontaneous
  Country: US (occurrence: US)
  Receive Date: 20170620
  Receipt Date: 20170620
  Transmission Date: 20170830
  Serious: No
  Sender: FDA-Public Use
  Company Number: US-AMGEN-USASP2017090209

PATIENT
  Age: 42 Year
  Sex: Male

DRUGS (3)
  1. DOVONEX [Concomitant]
     Active Substance: CALCIPOTRIENE
     Dosage: UNK
  2. ENBREL [Suspect]
     Active Substance: ETANERCEPT
     Indication: PSORIASIS
     Dosage: 50 MG, QWK
     Route: 058
  3. OMEPRAZOLE. [Concomitant]
     Active Substance: OMEPRAZOLE
     Dosage: UNK

REACTIONS (3)
  - Drug ineffective [Unknown]
  - Psoriasis [Unknown]
  - Sensitivity to weather change [Unknown]
